FAERS Safety Report 15412124 (Version 1)
Quarter: 2018Q3

REPORT INFORMATION
  Report Type: Spontaneous
  Country: US (occurrence: US)
  Receive Date: 20180921
  Receipt Date: 20180921
  Transmission Date: 20181010
  Serious: No
  Sender: FDA-Public Use
  Company Number: US-RECKITT BENCKISER HEALTHCARE INT LIMITED-RB-96702-2017

PATIENT
  Age: 88 Year
  Sex: Female

DRUGS (2)
  1. MUCINEX [Suspect]
     Active Substance: GUAIFENESIN
     Indication: PRODUCT USED FOR UNKNOWN INDICATION
     Dosage: 600 MG, QD
     Route: 065
     Dates: start: 20170820
  2. OXYBUTYNIN. [Concomitant]
     Active Substance: OXYBUTYNIN CHLORIDE
     Indication: DIABETES MELLITUS
     Dosage: UNK
     Route: 048

REACTIONS (3)
  - Flatulence [Unknown]
  - Product quality issue [Unknown]
  - Eructation [Unknown]

NARRATIVE: CASE EVENT DATE: 20170820
